FAERS Safety Report 15416478 (Version 4)
Quarter: 2019Q1

REPORT INFORMATION
  Report Type: Report from Study
  Country: CO (occurrence: CO)
  Receive Date: 20180924
  Receipt Date: 20190117
  Transmission Date: 20190417
  Serious: Yes (Hospitalization, Other)
  Sender: FDA-Public Use
  Company Number: PHHY2018CO098685

PATIENT
  Age: 42 Year
  Sex: Female

DRUGS (1)
  1. REVOLADE [Suspect]
     Active Substance: ELTROMBOPAG
     Indication: IMMUNE THROMBOCYTOPENIC PURPURA
     Dosage: 50 MG, QD
     Route: 048
     Dates: start: 20180904

REACTIONS (12)
  - Haematemesis [Unknown]
  - Skin discolouration [Unknown]
  - Contusion [Unknown]
  - Vomiting [Unknown]
  - Diarrhoea [Unknown]
  - Haemorrhage [Unknown]
  - Epistaxis [Unknown]
  - Malaise [Unknown]
  - Feeling abnormal [Unknown]
  - Viral infection [Unknown]
  - Haemoptysis [Unknown]
  - Dizziness [Unknown]

NARRATIVE: CASE EVENT DATE: 201812
